FAERS Safety Report 14751646 (Version 1)
Quarter: 2018Q2

REPORT INFORMATION
  Report Type: Spontaneous
  Country: US (occurrence: US)
  Receive Date: 20180406
  Receipt Date: 20180406
  Transmission Date: 20180711
  Serious: Yes (Hospitalization)
  Sender: FDA-Public Use
  Company Number: None

PATIENT
  Age: 54 Year
  Sex: Female
  Weight: 147 kg

DRUGS (2)
  1. CARBOPLATIN. [Suspect]
     Active Substance: CARBOPLATIN
     Dates: end: 20180312
  2. TAXOL [Suspect]
     Active Substance: PACLITAXEL
     Dates: end: 20180312

REACTIONS (1)
  - Anaemia [None]

NARRATIVE: CASE EVENT DATE: 20180402
